FAERS Safety Report 24065176 (Version 1)
Quarter: 2024Q3

REPORT INFORMATION
  Report Type: Spontaneous
  Country: US (occurrence: None)
  Receive Date: 20240708
  Receipt Date: 20240708
  Transmission Date: 20241017
  Serious: Yes (Hospitalization)
  Sender: Public
  Company Number: None

PATIENT
  Age: 56 Year
  Sex: Female

DRUGS (2)
  1. TOPIRAMATE [Suspect]
     Active Substance: TOPIRAMATE
     Indication: Migraine
  2. PHENTERMINE [Suspect]
     Active Substance: PHENTERMINE

REACTIONS (2)
  - Cardiac operation [None]
  - Mitral valve incompetence [None]

NARRATIVE: CASE EVENT DATE: 20221215
